FAERS Safety Report 8506361-6 (Version None)
Quarter: 2012Q3

REPORT INFORMATION
  Report Type: 
  Country: None (occurrence: None)
  Receive Date: 20120712
  Receipt Date: 20120706
  Transmission Date: 20120928
  Serious: Yes (Other)
  Sender: FDA-Public Use
  Company Number: JP-ROXANE LABORATORIES, INC.-2012-RO-01521RO

PATIENT
  Age: 30 Year
  Sex: Female
  Weight: 60 kg

DRUGS (1)
  1. MORPHINE [Suspect]

REACTIONS (3)
  - ALTERED STATE OF CONSCIOUSNESS [None]
  - VOMITING [None]
  - LIVER INJURY [None]
